FAERS Safety Report 12202083 (Version 1)
Quarter: 2016Q1

REPORT INFORMATION
  Report Type: Spontaneous
  Country: DE (occurrence: DE)
  Receive Date: 20160322
  Receipt Date: 20160322
  Transmission Date: 20160526
  Serious: Yes (Other)
  Sender: FDA-Public Use
  Company Number: GXKR2016DE001438

PATIENT

DRUGS (8)
  1. BIOFANAL [Concomitant]
     Indication: VULVOVAGINAL MYCOTIC INFECTION
     Dosage: UNK; GW 37-38
     Route: 064
  2. CLEXANE [Concomitant]
     Active Substance: ENOXAPARIN SODIUM
     Indication: FACTOR V DEFICIENCY
     Dosage: 40 [MG/D ]; GW 4-41.1
     Route: 064
  3. QUENSYL [Suspect]
     Active Substance: HYDROXYCHLOROQUINE
     Indication: SYSTEMIC LUPUS ERYTHEMATOSUS
     Dosage: 200 [MG/D ]; GW 15 - 41.1
     Route: 064
  4. L-THYROXINE//LEVOTHYROXINE [Concomitant]
     Indication: HYPOTHYROIDISM
     Dosage: 75 [?G/D ]/ IN THE BEGINNING 25 ?G/D LATER DOSAGE INCREASED TO 75 ?G/D
     Route: 064
     Dates: start: 20150214, end: 20151129
  5. CITALOPRAM [Suspect]
     Active Substance: CITALOPRAM HYDROBROMIDE
     Indication: ANXIETY DISORDER
     Dosage: 40 [MG/D ]
     Route: 064
     Dates: start: 20150214, end: 20151129
  6. FLUOMIZIN [Concomitant]
     Indication: BACTERIAL VAGINOSIS
     Dosage: 10 [MG/D ]; GW 26-27
     Route: 064
  7. AMOXIHEXAL [Concomitant]
     Active Substance: AMOXICILLIN
     Indication: SINUSITIS
     Dosage: 3000 [MG/D ]; GW 37-39
     Route: 064
  8. FOLSAEURE [Concomitant]
     Active Substance: FOLIC ACID
     Indication: PROPHYLAXIS OF NEURAL TUBE DEFECT
     Dosage: 0.4 [MG/D ]
     Route: 064
     Dates: start: 20150214, end: 20150527

REACTIONS (1)
  - Small for dates baby [Unknown]

NARRATIVE: CASE EVENT DATE: 20151129
